FAERS Safety Report 12554777 (Version 1)
Quarter: 2016Q3

REPORT INFORMATION
  Report Type: Spontaneous
  Country: US (occurrence: US)
  Receive Date: 20160713
  Receipt Date: 20160713
  Transmission Date: 20161109
  Serious: Yes (Other)
  Sender: FDA-Public Use
  Company Number: US-CELGENEUS-USA-2016071637

PATIENT
  Age: 72 Year
  Sex: Female
  Weight: 77.18 kg

DRUGS (16)
  1. ALLOPURINOL. [Concomitant]
     Active Substance: ALLOPURINOL
     Indication: GOUT
     Dosage: 1 GRAM
     Route: 065
  2. POTASSIUM [Concomitant]
     Active Substance: POTASSIUM
     Indication: VITAMIN SUPPLEMENTATION
     Dosage: 1000 MILLIGRAM
     Route: 065
  3. REVLIMID [Suspect]
     Active Substance: LENALIDOMIDE
     Indication: PLASMA CELL MYELOMA
     Dosage: 25 MILLIGRAM
     Route: 048
     Dates: start: 20160624
  4. EDARBI [Concomitant]
     Active Substance: AZILSARTAN KAMEDOXOMIL
     Indication: HYPERTENSION
     Dosage: 5 MILLIGRAM
     Route: 065
  5. LIPITOR [Concomitant]
     Active Substance: ATORVASTATIN CALCIUM
     Indication: HYPERLIPIDAEMIA
     Dosage: 45 MILLIGRAM
     Route: 065
  6. VITAMIN D3 [Concomitant]
     Active Substance: CHOLECALCIFEROL
     Indication: VITAMIN SUPPLEMENTATION
     Dosage: 2000 UNIT
     Route: 065
  7. METFORMIN [Concomitant]
     Active Substance: METFORMIN HYDROCHLORIDE
     Indication: DIABETES MELLITUS
     Dosage: 40 MILLIGRAM
     Route: 065
  8. VASCEPA [Concomitant]
     Active Substance: ICOSAPENT ETHYL
     Indication: HYPERLIPIDAEMIA
     Dosage: 10 MILLIGRAM
     Route: 065
  9. ASA [Concomitant]
     Active Substance: ASPIRIN
     Indication: CARDIAC DISORDER
     Dosage: 50 MILLIGRAM
     Route: 065
  10. IRON [Concomitant]
     Active Substance: IRON
     Indication: VITAMIN SUPPLEMENTATION
     Dosage: 5 MILLIEQUIVALENTS
     Route: 065
  11. LASIX [Concomitant]
     Active Substance: FUROSEMIDE
     Indication: DIURETIC THERAPY
     Route: 065
  12. AMLODIPINE [Concomitant]
     Active Substance: AMLODIPINE BESYLATE
     Indication: HYPERTENSION
     Dosage: 40 MILLIGRAM
     Route: 065
  13. TRILIPIX [Concomitant]
     Active Substance: FENOFIBRIC ACID
     Indication: HYPERLIPIDAEMIA
     Route: 065
  14. TRAMADOL. [Concomitant]
     Active Substance: TRAMADOL
     Indication: PAIN
     Dosage: 81 MILLIGRAM
     Route: 065
  15. OMEPRAZOLE. [Concomitant]
     Active Substance: OMEPRAZOLE
     Indication: GASTROOESOPHAGEAL REFLUX DISEASE
     Dosage: 50 MILLIGRAM
     Route: 065
  16. VITAMIN B12 [Concomitant]
     Active Substance: CYANOCOBALAMIN
     Indication: VITAMIN SUPPLEMENTATION
     Route: 065

REACTIONS (1)
  - White blood cell count decreased [Unknown]

NARRATIVE: CASE EVENT DATE: 20160701
